FAERS Safety Report 5613027-9 (Version None)
Quarter: 2008Q1

REPORT INFORMATION
  Report Type: 
  Country: None (occurrence: None)
  Receive Date: 20080204
  Receipt Date: 20080129
  Transmission Date: 20080703
  Serious: Yes (Hospitalization)
  Sender: FDA-Public Use
  Company Number: DE-PFIZER INC-2008007296

PATIENT
  Sex: Male
  Weight: 82 kg

DRUGS (4)
  1. CAMPTO [Suspect]
     Indication: COLON CANCER METASTATIC
     Dosage: DAILY DOSE:80MG/M2
     Route: 042
     Dates: start: 20070830, end: 20071025
  2. AVASTIN [Suspect]
     Indication: COLON CANCER METASTATIC
     Dosage: DAILY DOSE:400MG
     Route: 042
     Dates: start: 20070920, end: 20071025
  3. FLUOROURACIL [Suspect]
     Indication: COLON CANCER METASTATIC
     Dosage: TEXT:2 G/M2
     Route: 042
     Dates: start: 20070830, end: 20071025
  4. SODIUM FOLINATE [Suspect]
     Indication: COLON CANCER METASTATIC
     Route: 042
     Dates: start: 20070830, end: 20071025

REACTIONS (4)
  - CHEST DISCOMFORT [None]
  - DYSPNOEA [None]
  - SUBACUTE ENDOCARDITIS [None]
  - TACHYCARDIA [None]
